FAERS Safety Report 7206380-6 (Version None)
Quarter: 2011Q1

REPORT INFORMATION
  Report Type: 
  Country: None (occurrence: None)
  Receive Date: 20110103
  Receipt Date: 20110103
  Transmission Date: 20110831
  Serious: Yes (Hospitalization)
  Sender: FDA-Public Use
  Company Number: PHHO2008US12326

PATIENT
  Sex: Male
  Weight: 84.5 kg

DRUGS (2)
  1. AFINITOR [Suspect]
     Indication: CARCINOID TUMOUR
     Dosage: 10 MG, QD
     Route: 048
     Dates: start: 20080218, end: 20081013
  2. SANDOSTATIN LAR [Concomitant]
     Indication: CARCINOID TUMOUR

REACTIONS (3)
  - DIARRHOEA [None]
  - ABDOMINAL PAIN LOWER [None]
  - FAECES DISCOLOURED [None]
